FAERS Safety Report 9788273 (Version 1)
Quarter: 2013Q4

REPORT INFORMATION
  Report Type: Report from Study
  Country: GB (occurrence: GB)
  Receive Date: 20131230
  Receipt Date: 20131230
  Transmission Date: 20140711
  Serious: Yes (Hospitalization)
  Sender: FDA-Public Use
  Company Number: GB-AMGEN-GBRCT2013090998

PATIENT
  Age: 50 Year
  Sex: Male

DRUGS (2)
  1. ETANERCEPT [Suspect]
     Indication: PRODUCT USED FOR UNKNOWN INDICATION
     Dosage: 50 MG, WEEKLY
     Route: 065
     Dates: start: 20130303, end: 20130914
  2. INFLUENZA VACCINE [Concomitant]
     Dosage: UNK
     Dates: start: 20131116, end: 20131116

REACTIONS (1)
  - Psoriasis [Recovered/Resolved]
